FAERS Safety Report 13825199 (Version 3)
Quarter: 2018Q1

REPORT INFORMATION
  Report Type: Report from Study
  Country: US (occurrence: US)
  Receive Date: 20170802
  Receipt Date: 20180228
  Transmission Date: 20180508
  Serious: Yes (Other)
  Sender: FDA-Public Use
  Company Number: US-JNJFOC-20170800414

PATIENT
  Sex: Female

DRUGS (4)
  1. ULTRAM [Concomitant]
     Active Substance: TRAMADOL HYDROCHLORIDE
  2. IMBRUVICA [Suspect]
     Active Substance: IBRUTINIB
     Indication: CHRONIC LYMPHOCYTIC LEUKAEMIA
     Route: 048
  3. IMBRUVICA [Suspect]
     Active Substance: IBRUTINIB
     Indication: CHRONIC LYMPHOCYTIC LEUKAEMIA
     Route: 048
     Dates: start: 2018
  4. ACETAMINOPHEN. [Concomitant]
     Active Substance: ACETAMINOPHEN

REACTIONS (12)
  - Decreased appetite [Not Recovered/Not Resolved]
  - Pain in extremity [Recovering/Resolving]
  - Rash [Recovered/Resolved]
  - Infection [Recovered/Resolved]
  - Insomnia [Not Recovered/Not Resolved]
  - Arthralgia [Recovering/Resolving]
  - Post procedural haematoma [Unknown]
  - Joint swelling [Not Recovered/Not Resolved]
  - Knee operation [Unknown]
  - Lymphadenopathy [Not Recovered/Not Resolved]
  - Peripheral swelling [Recovering/Resolving]
  - Constipation [Not Recovered/Not Resolved]

NARRATIVE: CASE EVENT DATE: 2017
